FAERS Safety Report 26175484 (Version 1)
Quarter: 2025Q4

REPORT INFORMATION
  Report Type: Spontaneous
  Country: US (occurrence: US)
  Receive Date: 20251218
  Receipt Date: 20251218
  Transmission Date: 20260117
  Serious: Yes (Hospitalization)
  Sender: INCYTE
  Company Number: US-INCYTE CORPORATION-2025IN014062

PATIENT

DRUGS (1)
  1. JAKAFI [Suspect]
     Active Substance: RUXOLITINIB
     Indication: Cytomegalovirus infection
     Dosage: 5 MILLIGRAM, BID
     Route: 061

REACTIONS (2)
  - Disease complication [Unknown]
  - Off label use [Unknown]
